FAERS Safety Report 24626273 (Version 4)
Quarter: 2025Q1

REPORT INFORMATION
  Report Type: Spontaneous
  Country: US (occurrence: US)
  Receive Date: 20241115
  Receipt Date: 20250305
  Transmission Date: 20250408
  Serious: Yes (Other)
  Sender: SANOFI AVENTIS
  Company Number: US-SA-2024SA328284

PATIENT
  Age: 65 Year
  Sex: Female

DRUGS (2)
  1. REZUROCK [Interacting]
     Active Substance: BELUMOSUDIL
     Indication: Graft versus host disease
     Dosage: 200 MG, QD
     Route: 048
     Dates: start: 20240716
  2. SIMVASTATIN [Interacting]
     Active Substance: SIMVASTATIN

REACTIONS (6)
  - Deafness [Unknown]
  - Tooth disorder [Unknown]
  - Brain fog [Unknown]
  - Rash [Unknown]
  - Drug interaction [Unknown]
  - Muscle spasms [Unknown]

NARRATIVE: CASE EVENT DATE: 20240101
